FAERS Safety Report 15613796 (Version 1)
Quarter: 2018Q4

REPORT INFORMATION
  Report Type: Spontaneous
  Country: FR (occurrence: FR)
  Receive Date: 20181113
  Receipt Date: 20181113
  Transmission Date: 20190205
  Serious: Yes (Congenital Anomaly)
  Sender: FDA-Public Use
  Company Number: FR-UCBSA-2018049373

PATIENT

DRUGS (3)
  1. DEPAKINE [Suspect]
     Active Substance: VALPROATE SODIUM
     Indication: PRODUCT USED FOR UNKNOWN INDICATION
     Dosage: 500 MG, 2X/DAY (BID)
     Route: 064
     Dates: start: 20110711, end: 201202
  2. KEPPRA [Suspect]
     Active Substance: LEVETIRACETAM
     Indication: PRODUCT USED FOR UNKNOWN INDICATION
     Dosage: 250 MG, ONCE DAILY (QD)
     Route: 064
     Dates: start: 20110711, end: 20120406
  3. LAMOTRIGINE. [Suspect]
     Active Substance: LAMOTRIGINE
     Indication: PRODUCT USED FOR UNKNOWN INDICATION
     Dosage: 25 MG, 2X/DAY (BID)
     Route: 064
     Dates: start: 20110711, end: 20120406

REACTIONS (3)
  - Congenital renal cyst [Recovered/Resolved with Sequelae]
  - Foetal exposure during pregnancy [Unknown]
  - Multiple congenital abnormalities [Not Recovered/Not Resolved]

NARRATIVE: CASE EVENT DATE: 20120406
